FAERS Safety Report 6602019-9 (Version None)
Quarter: 2010Q1

REPORT INFORMATION
  Report Type: 
  Country: None (occurrence: None)
  Receive Date: 20100225
  Receipt Date: 20100217
  Transmission Date: 20100710
  Serious: Yes (Hospitalization)
  Sender: FDA-Public Use
  Company Number: US-GILEAD-2010-0027172

PATIENT
  Sex: Female
  Weight: 73.548 kg

DRUGS (20)
  1. LETAIRIS [Suspect]
     Indication: PULMONARY ARTERIAL HYPERTENSION
     Route: 048
     Dates: start: 20091202
  2. REVATIO [Concomitant]
  3. VIAGRA [Concomitant]
  4. ASPIRIN [Concomitant]
  5. LASIX [Concomitant]
  6. NORVASC [Concomitant]
  7. LISINOPRIL [Concomitant]
  8. ZOSYN [Concomitant]
  9. TYLENOL-500 [Concomitant]
  10. NAPROXEN [Concomitant]
  11. PREDNISONE [Concomitant]
  12. VANCOMYCIN [Concomitant]
  13. VENTOLIN [Concomitant]
  14. SYMICORT [Concomitant]
  15. ALBUTEROL [Concomitant]
  16. COMBIVENT [Concomitant]
  17. SPRIVA [Concomitant]
  18. ALENDRONATE SODIUM [Concomitant]
  19. CRESTOR [Concomitant]
  20. CALCIUM [Concomitant]

REACTIONS (1)
  - CARDIAC ARREST [None]
